FAERS Safety Report 10341811 (Version 1)
Quarter: 2014Q3

REPORT INFORMATION
  Report Type: Spontaneous
  Country: US (occurrence: None)
  Receive Date: 20140724
  Receipt Date: 20140724
  Transmission Date: 20150326
  Serious: Yes (Hospitalization)
  Sender: FDA-Public Use
  Company Number: None

PATIENT
  Age: 71 Year
  Sex: Male
  Weight: 101.4 kg

DRUGS (1)
  1. RIVAROXABAN [Suspect]
     Active Substance: RIVAROXABAN
     Indication: ATRIAL FIBRILLATION
     Route: 048
     Dates: end: 20140723

REACTIONS (6)
  - Occult blood positive [None]
  - Syncope [None]
  - Epigastric discomfort [None]
  - Faeces discoloured [None]
  - Anaemia [None]
  - Cardiac failure congestive [None]

NARRATIVE: CASE EVENT DATE: 20140721
